FAERS Safety Report 17074108 (Version 1)
Quarter: 2019Q4

REPORT INFORMATION
  Report Type: Spontaneous
  Country: HK (occurrence: HK)
  Receive Date: 20191126
  Receipt Date: 20191126
  Transmission Date: 20200122
  Serious: Yes (Disabling, Other)
  Sender: FDA-Public Use
  Company Number: HK-ROCHE-2475288

PATIENT
  Age: 42 Year
  Sex: Female

DRUGS (16)
  1. TECENTRIQ [Suspect]
     Active Substance: ATEZOLIZUMAB
     Indication: ADENOCARCINOMA
     Route: 041
     Dates: start: 20190722
  2. DENOSUMAB [Concomitant]
     Active Substance: DENOSUMAB
     Route: 065
  3. TAGRISSO [Concomitant]
     Active Substance: OSIMERTINIB
  4. AVASTIN [Suspect]
     Active Substance: BEVACIZUMAB
     Indication: ADENOCARCINOMA
     Route: 065
     Dates: start: 20190624
  5. OXALIPLATIN. [Suspect]
     Active Substance: OXALIPLATIN
     Indication: ADENOCARCINOMA
     Route: 065
     Dates: start: 20190624
  6. FOLINIC ACID [Concomitant]
     Active Substance: LEUCOVORIN
     Route: 065
     Dates: start: 201607
  7. IRINOTECAN [Concomitant]
     Active Substance: IRINOTECAN
     Route: 065
     Dates: start: 201607
  8. GEMCITABINE. [Suspect]
     Active Substance: GEMCITABINE
     Indication: ADENOCARCINOMA
     Route: 065
     Dates: start: 20190102
  9. GEMCITABINE. [Suspect]
     Active Substance: GEMCITABINE
     Route: 065
     Dates: start: 20190624
  10. GEMCITABINE. [Concomitant]
     Active Substance: GEMCITABINE
     Indication: ADENOCARCINOMA
     Route: 065
     Dates: start: 20190624
  11. 5-FU [FLUOROURACIL] [Concomitant]
     Active Substance: FLUOROURACIL
     Route: 065
     Dates: start: 20191102
  12. OXALIPLATIN. [Concomitant]
     Active Substance: OXALIPLATIN
     Route: 065
     Dates: start: 201607
  13. ABRAXANE [Concomitant]
     Active Substance: PACLITAXEL
     Route: 065
     Dates: start: 20190102
  14. 5-FU [FLUOROURACIL] [Concomitant]
     Active Substance: FLUOROURACIL
     Route: 065
     Dates: start: 201607
  15. ONIVYDE [Concomitant]
     Active Substance: IRINOTECAN HYDROCHLORIDE
     Route: 065
     Dates: start: 20191102
  16. TAGRISSO [Concomitant]
     Active Substance: OSIMERTINIB
     Route: 065
     Dates: start: 20190318

REACTIONS (7)
  - Hepatic neoplasm [Unknown]
  - Diarrhoea [Unknown]
  - Pelvic pain [Unknown]
  - Abdominal wall disorder [Unknown]
  - Gait inability [Recovered/Resolved]
  - Intentional product use issue [Unknown]
  - Nausea [Unknown]

NARRATIVE: CASE EVENT DATE: 20190830
